FAERS Safety Report 7712728-6 (Version None)
Quarter: 2011Q3

REPORT INFORMATION
  Report Type: 
  Country: None (occurrence: None)
  Receive Date: 20110826
  Receipt Date: 20110815
  Transmission Date: 20111222
  Serious: Yes (Death, Hospitalization)
  Sender: FDA-Public Use
  Company Number: US-GLAXOSMITHKLINE-A0863747A

PATIENT
  Age: 76 Year
  Sex: Male

DRUGS (5)
  1. LIPITOR [Concomitant]
  2. GLUCOPHAGE [Concomitant]
  3. AVANDAMET [Suspect]
     Indication: DIABETES MELLITUS
     Route: 048
     Dates: start: 20010101, end: 20070501
  4. AVANDIA [Suspect]
     Indication: DIABETES MELLITUS
     Dosage: 4MG PER DAY
     Route: 048
     Dates: start: 20010101, end: 20070501
  5. ALBUTEROL SULFATE AUTOHALER [Concomitant]

REACTIONS (3)
  - SEPSIS [None]
  - CEREBROVASCULAR ACCIDENT [None]
  - URINARY TRACT INFECTION [None]
